FAERS Safety Report 7406809-4 (Version None)
Quarter: 2011Q2

REPORT INFORMATION
  Report Type: 
  Country: None (occurrence: None)
  Receive Date: 20110411
  Receipt Date: 20110331
  Transmission Date: 20111010
  Serious: Yes (Other)
  Sender: FDA-Public Use
  Company Number: BR-SANOFI-AVENTIS-2011SA019880

PATIENT
  Sex: Female
  Weight: 60 kg

DRUGS (6)
  1. METFORMIN HCL [Concomitant]
     Route: 048
     Dates: start: 20010101
  2. ENALAPRIL MALEATE [Concomitant]
     Indication: HYPERTENSION
     Route: 048
     Dates: start: 20010101
  3. LANTUS [Suspect]
     Dosage: THE DOSE VARIES ACCORDING TO BLOOD GLUCOSE
     Route: 058
     Dates: start: 20090101
  4. SOLOSTAR [Suspect]
  5. VITAMIN B COMPLEX CAP [Concomitant]
     Route: 048
     Dates: start: 20010101
  6. METFORMIN HCL [Concomitant]
     Route: 048
     Dates: start: 20010101

REACTIONS (6)
  - HYPERGLYCAEMIA [None]
  - ISCHAEMIA [None]
  - HYPOGLYCAEMIA [None]
  - FALL [None]
  - NERVOUSNESS [None]
  - SYNCOPE [None]
